FAERS Safety Report 7311437-5 (Version None)
Quarter: 2011Q1

REPORT INFORMATION
  Report Type: 
  Country: None (occurrence: None)
  Receive Date: 20110224
  Receipt Date: 20110218
  Transmission Date: 20110831
  Serious: Yes (Hospitalization)
  Sender: FDA-Public Use
  Company Number: US-TYCO HEALTHCARE/MALLINCKRODT-T201100348

PATIENT
  Sex: Female

DRUGS (8)
  1. INSULIN [Concomitant]
  2. FERROUS SULFATE TAB [Concomitant]
  3. OPTIRAY 350 [Suspect]
     Indication: COMPUTERISED TOMOGRAM
     Dosage: 100 ML, SINGLE
     Route: 042
     Dates: start: 20110212, end: 20110212
  4. FLEXERIL [Concomitant]
  5. IMDUR [Concomitant]
  6. METARAMINOL BITARTRATE [Concomitant]
  7. ZOLOFT [Concomitant]
  8. PRAVACHOL [Concomitant]

REACTIONS (2)
  - BLOOD CREATININE INCREASED [None]
  - CHEST PAIN [None]
